FAERS Safety Report 17953039 (Version 1)
Quarter: 2020Q2

REPORT INFORMATION
  Report Type: Spontaneous
  Country: US (occurrence: US)
  Receive Date: 20200627
  Receipt Date: 20200627
  Transmission Date: 20200714
  Serious: No
  Sender: FDA-Public Use
  Company Number: US-AMGEN-USASP2020096290

PATIENT
  Age: 54 Year
  Sex: Female

DRUGS (1)
  1. OTEZLA [Suspect]
     Active Substance: APREMILAST
     Indication: ILL-DEFINED DISORDER
     Dosage: 30 MILLIGRAM, BID
     Route: 048

REACTIONS (3)
  - Product supply issue [Not Recovered/Not Resolved]
  - Skin disorder [Not Recovered/Not Resolved]
  - Off label use [Unknown]

NARRATIVE: CASE EVENT DATE: 20200611
